FAERS Safety Report 5441331-6 (Version None)
Quarter: 2007Q3

REPORT INFORMATION
  Report Type: 
  Country: None (occurrence: None)
  Receive Date: 20070903
  Receipt Date: 20070824
  Transmission Date: 20080115
  Serious: Yes (Other)
  Sender: FDA-Public Use
  Company Number: PHEH2007US11726

PATIENT
  Age: 50 Year
  Sex: Male

DRUGS (1)
  1. TEGRETOL [Suspect]
     Indication: COMPLEX PARTIAL SEIZURES
     Dates: start: 20000101, end: 20060701

REACTIONS (2)
  - BLOOD ALKALINE PHOSPHATASE INCREASED [None]
  - OSTEOPENIA [None]
